FAERS Safety Report 6961676-8 (Version None)
Quarter: 2010Q3

REPORT INFORMATION
  Report Type: 
  Country: None (occurrence: None)
  Receive Date: 20100901
  Receipt Date: 20100824
  Transmission Date: 20110219
  Serious: No
  Sender: FDA-Public Use
  Company Number: US-US-EMD SERONO, INC.-7015605

PATIENT
  Sex: Female

DRUGS (2)
  1. REBIF [Suspect]
     Indication: MULTIPLE SCLEROSIS
     Route: 058
     Dates: start: 20090717, end: 20100701
  2. REBIF [Suspect]
     Route: 058
     Dates: start: 20100801

REACTIONS (3)
  - MULTIPLE SCLEROSIS RELAPSE [None]
  - STRESS [None]
  - TRISMUS [None]
